FAERS Safety Report 12845645 (Version 6)
Quarter: 2022Q3

REPORT INFORMATION
  Report Type: Spontaneous
  Country: FR (occurrence: FR)
  Receive Date: 20161013
  Receipt Date: 20220815
  Transmission Date: 20221027
  Serious: Yes (Hospitalization, Other)
  Sender: FDA-Public Use
  Company Number: FR-GLAXOSMITHKLINE-FR2014GSK055337

PATIENT
  Age: 50 Year
  Sex: Male

DRUGS (20)
  1. REQUIP [Suspect]
     Active Substance: ROPINIROLE HYDROCHLORIDE
     Indication: Parkinson^s disease
     Dosage: UNK
     Dates: start: 20030821, end: 200709
  2. REQUIP [Suspect]
     Active Substance: ROPINIROLE HYDROCHLORIDE
     Dosage: 1 MG, QD
     Dates: start: 20031125
  3. REQUIP [Suspect]
     Active Substance: ROPINIROLE HYDROCHLORIDE
     Dosage: 6 MG, QD
     Dates: start: 20031009
  4. REQUIP [Suspect]
     Active Substance: ROPINIROLE HYDROCHLORIDE
     Dosage: 15 MG, QD
     Dates: start: 20040330
  5. REQUIP [Suspect]
     Active Substance: ROPINIROLE HYDROCHLORIDE
     Dosage: 9 MG
     Dates: start: 200503
  6. REQUIP [Suspect]
     Active Substance: ROPINIROLE HYDROCHLORIDE
     Dosage: 12 MG
  7. BENSERAZIDE HYDROCHLORIDE\LEVODOPA [Suspect]
     Active Substance: BENSERAZIDE HYDROCHLORIDE\LEVODOPA
     Indication: Parkinson^s disease
     Dosage: UNK, Z
     Dates: end: 200604
  8. BENSERAZIDE HYDROCHLORIDE\LEVODOPA [Suspect]
     Active Substance: BENSERAZIDE HYDROCHLORIDE\LEVODOPA
     Dosage: UNK, QID 125
  9. BENSERAZIDE HYDROCHLORIDE\LEVODOPA [Suspect]
     Active Substance: BENSERAZIDE HYDROCHLORIDE\LEVODOPA
     Dosage: UNK, TID 62.5
     Dates: start: 20040927
  10. STALEVO [Concomitant]
     Active Substance: CARBIDOPA\ENTACAPONE\LEVODOPA
     Indication: Parkinson^s disease
     Dosage: UNK, U
     Dates: start: 200604
  11. RIVOTRIL [Concomitant]
     Active Substance: CLONAZEPAM
     Indication: Myoclonus
     Dosage: UNK UNK, U
     Dates: start: 2004
  12. RIVOTRIL [Concomitant]
     Active Substance: CLONAZEPAM
     Indication: Analgesic therapy
  13. MOTILIUM [Concomitant]
     Active Substance: DOMPERIDONE
     Indication: Product used for unknown indication
     Dosage: UNK UNK, U
  14. VITAMIN B6 [Concomitant]
     Active Substance: PYRIDOXINE HYDROCHLORIDE
     Indication: Product used for unknown indication
     Dosage: UNK
  15. HEXAQUINE [Concomitant]
     Active Substance: NIAOULI OIL\QUININE BENZOATE\THIAMINE HYDROCHLORIDE
     Indication: Product used for unknown indication
  16. LEVITRA [Concomitant]
     Active Substance: VARDENAFIL HYDROCHLORIDE
     Indication: Product used for unknown indication
     Dosage: UNK UNK, U
     Dates: start: 2003
  17. RIFATER [Concomitant]
     Active Substance: ISONIAZID\PYRAZINAMIDE\RIFAMPIN
     Indication: Product used for unknown indication
     Dosage: 4 DF(TABLET), Z(1M)
  18. PYRAZINAMIDE [Concomitant]
     Active Substance: PYRAZINAMIDE
     Indication: Product used for unknown indication
     Dosage: 0.5 DF, Z(1M)
  19. OMEPRAZOLE [Concomitant]
     Active Substance: OMEPRAZOLE
     Indication: Product used for unknown indication
     Dosage: 2 DF, 1D
  20. PERGOLIDE MESYLATE [Concomitant]
     Active Substance: PERGOLIDE MESYLATE
     Indication: Parkinson^s disease
     Dosage: 1 MG, UNK
     Route: 048
     Dates: start: 20040226, end: 2004

REACTIONS (14)
  - Dopamine dysregulation syndrome [Recovered/Resolved]
  - Gambling disorder [Recovered/Resolved]
  - Hallucination [Recovered/Resolved]
  - Impulse-control disorder [Recovered/Resolved]
  - Insomnia [Unknown]
  - Compulsive sexual behaviour [Recovered/Resolved]
  - Impulsive behaviour [Recovered/Resolved]
  - Abnormal behaviour [Recovered/Resolved]
  - Somnolence [Unknown]
  - Aggression [Unknown]
  - Thinking abnormal [Unknown]
  - Food craving [Recovered/Resolved]
  - Incorrect drug administration rate [Unknown]
  - Product quality issue [Unknown]

NARRATIVE: CASE EVENT DATE: 20031001
